FAERS Safety Report 23518796 (Version 1)
Quarter: 2024Q1

REPORT INFORMATION
  Report Type: Spontaneous
  Country: IT (occurrence: IT)
  Receive Date: 20240213
  Receipt Date: 20240213
  Transmission Date: 20240409
  Serious: Yes (Hospitalization, Other)
  Sender: FDA-Public Use
  Company Number: None

PATIENT
  Age: 67 Year
  Sex: Male

DRUGS (3)
  1. CLOBAZAM [Suspect]
     Active Substance: CLOBAZAM
     Indication: Intentional self-injury
     Dosage: 300 MG
     Route: 048
     Dates: start: 20240123
  2. LEVETIRACETAM [Suspect]
     Active Substance: LEVETIRACETAM
     Indication: Intentional self-injury
     Dosage: 15 G
     Route: 048
     Dates: start: 20240123
  3. VALPROATE SODIUM [Suspect]
     Active Substance: VALPROATE SODIUM
     Indication: Intentional self-injury
     Dosage: 2.5 G
     Route: 048
     Dates: start: 20240123

REACTIONS (4)
  - Abdominal pain upper [Recovering/Resolving]
  - Bladder sphincter atony [Recovering/Resolving]
  - Substance abuse [Recovering/Resolving]
  - Loss of consciousness [Recovering/Resolving]

NARRATIVE: CASE EVENT DATE: 20240123
